FAERS Safety Report 12683522 (Version 4)
Quarter: 2016Q4

REPORT INFORMATION
  Report Type: Spontaneous
  Country: US (occurrence: US)
  Receive Date: 20160825
  Receipt Date: 20161230
  Transmission Date: 20170207
  Serious: No
  Sender: FDA-Public Use
  Company Number: US-PFIZER INC-2016402587

PATIENT
  Age: 69 Year
  Sex: Female

DRUGS (4)
  1. WARFARIN [Interacting]
     Active Substance: WARFARIN
     Dosage: UNK
  2. CELECOXIB. [Interacting]
     Active Substance: CELECOXIB
     Indication: ARTHRALGIA
     Dosage: 200 MG, DAILY (QD)
     Route: 048
     Dates: start: 201502, end: 201608
  3. CELECOXIB. [Suspect]
     Active Substance: CELECOXIB
     Indication: NERVE INJURY
     Dosage: 200 MG, DAILY
     Dates: start: 2013
  4. CELECOXIB. [Interacting]
     Active Substance: CELECOXIB
     Indication: INTERNATIONAL NORMALISED RATIO INCREASED

REACTIONS (5)
  - Product use issue [Unknown]
  - Blood disorder [Not Recovered/Not Resolved]
  - International normalised ratio abnormal [Unknown]
  - Drug ineffective [Unknown]
  - Drug interaction [Unknown]
